FAERS Safety Report 5239273-4 (Version None)
Quarter: 2007Q1

REPORT INFORMATION
  Report Type: 
  Country: None (occurrence: None)
  Receive Date: 20061208
  Receipt Date: 20050823
  Transmission Date: 20070707
  Serious: Yes (Other)
  Sender: FDA-Public Use
  Company Number: 2005UW12483

PATIENT
  Age: 83 Year
  Sex: Female
  Weight: 58.059 kg

DRUGS (3)
  1. CRESTOR [Suspect]
     Indication: BLOOD CHOLESTEROL INCREASED
     Dosage: 10 MG PO
     Route: 048
     Dates: start: 20050101
  2. PREVACID [Concomitant]
  3. ECOTRIN [Concomitant]

REACTIONS (3)
  - HOT FLUSH [None]
  - HYPERHIDROSIS [None]
  - SINUS HEADACHE [None]
